FAERS Safety Report 11167008 (Version 1)
Quarter: 2015Q2

REPORT INFORMATION
  Report Type: Spontaneous
  Country: US (occurrence: None)
  Receive Date: 20150604
  Receipt Date: 20150604
  Transmission Date: 20150821
  Serious: Yes (Other)
  Sender: FDA-Public Use
  Company Number: None

PATIENT
  Age: 49 Year
  Sex: Female
  Weight: 112.04 kg

DRUGS (7)
  1. ZOCOR [Concomitant]
     Active Substance: SIMVASTATIN
  2. SPIRONOLACTO [Concomitant]
  3. NEXIUM [Concomitant]
     Active Substance: ESOMEPRAZOLE MAGNESIUM
  4. DOXEPIN [Concomitant]
     Active Substance: DOXEPIN
  5. DILAUDID [Concomitant]
     Active Substance: HYDROMORPHONE HYDROCHLORIDE
  6. OTEZLA [Suspect]
     Active Substance: APREMILAST
     Indication: PSORIASIS
     Dosage: PERMANENTLY DISCONTINUED
     Route: 048
     Dates: start: 20150108, end: 20150503
  7. XANAX [Concomitant]
     Active Substance: ALPRAZOLAM

REACTIONS (2)
  - Psoriatic arthropathy [None]
  - Psoriasis [None]

NARRATIVE: CASE EVENT DATE: 20150108
